FAERS Safety Report 19436043 (Version 1)
Quarter: 2021Q2

REPORT INFORMATION
  Report Type: Report from Study
  Country: MX (occurrence: MX)
  Receive Date: 20210618
  Receipt Date: 20210618
  Transmission Date: 20210717
  Serious: Yes (Other)
  Sender: FDA-Public Use
  Company Number: NVSC2021MX094044

PATIENT
  Sex: Male
  Weight: 76 kg

DRUGS (1)
  1. GALVUS MET [Suspect]
     Active Substance: METFORMIN HYDROCHLORIDE\VILDAGLIPTIN
     Indication: DIABETES MELLITUS
     Dosage: 1 DF, QD (10 OR 11 YEARS AGO STARTED)
     Route: 048

REACTIONS (2)
  - Inappropriate schedule of product administration [Unknown]
  - Cholelithiasis [Recovered/Resolved]
